FAERS Safety Report 9405630 (Version 2)
Quarter: 2013Q3

REPORT INFORMATION
  Report Type: Spontaneous
  Country: FR (occurrence: FR)
  Receive Date: 20130717
  Receipt Date: 20130729
  Transmission Date: 20140515
  Serious: Yes (Hospitalization)
  Sender: FDA-Public Use
  Company Number: FR-B.I. PHARMACEUTICALS,INC./RIDGEFIELD-2013-FF-01844FF

PATIENT
  Age: 65 Year
  Sex: Female

DRUGS (11)
  1. PRADAXA [Suspect]
     Route: 048
     Dates: end: 20121014
  2. JANUVIA [Suspect]
     Dosage: 100 MG
     Route: 048
     Dates: end: 20130617
  3. BISOPROLOL [Suspect]
     Dosage: 10 MG
     Route: 048
  4. SIMVASTATINE [Suspect]
     Dosage: 20 MG
     Route: 048
  5. KARDEGIC [Suspect]
     Dosage: 75 MG
     Route: 048
  6. COVERSYL [Suspect]
     Dosage: 2.5 MG
     Route: 048
  7. LANTUS [Suspect]
     Dosage: 56 U
     Route: 048
  8. ZOLPIDEM [Suspect]
     Dosage: 10 MG
     Route: 048
  9. VIRLIX [Suspect]
     Dosage: 10 MG
     Route: 048
  10. DIVARIUS [Suspect]
     Dosage: 20 MG
     Route: 048
  11. EUPANTOL [Suspect]
     Dosage: 20 MG
     Route: 048

REACTIONS (1)
  - Pancreatitis acute [Recovered/Resolved]
